FAERS Safety Report 4281032-3 (Version None)
Quarter: 2004Q1

REPORT INFORMATION
  Report Type: 
  Country: None (occurrence: None)
  Receive Date: 20040129
  Receipt Date: 20030320
  Transmission Date: 20041129
  Serious: No
  Sender: FDA-Public Use
  Company Number: US-BRISTOL-MYERS SQUIBB COMPANY-12217709

PATIENT
  Age: 46 Year
  Sex: Female
  Weight: 127 kg

DRUGS (1)
  1. CISPLATIN [Suspect]
     Indication: THYROID GLAND CANCER
     Dosage: DOSAGE 60 MG/M2

REACTIONS (1)
  - NEUROPATHY [None]
